FAERS Safety Report 7765591-1 (Version None)
Quarter: 2011Q3

REPORT INFORMATION
  Report Type: 
  Country: None (occurrence: None)
  Receive Date: 20110921
  Receipt Date: 20110913
  Transmission Date: 20111222
  Serious: Yes (Hospitalization)
  Sender: FDA-Public Use
  Company Number: PHFR2011GB03586

PATIENT
  Sex: Male

DRUGS (4)
  1. ZOMETA [Suspect]
     Indication: MULTIPLE MYELOMA
     Dosage: 4 MG EVERY 4 WEEKS
     Dates: start: 20110513
  2. METFORMIN HCL [Concomitant]
     Dosage: UNK
  3. ZOMETA [Suspect]
     Dosage: 4 MG, QW4
     Dates: start: 20110610
  4. SEPTRA [Concomitant]
     Dosage: UNK

REACTIONS (4)
  - DYSPNOEA [None]
  - BACK PAIN [None]
  - PULMONARY EMBOLISM [None]
  - PAIN [None]
